FAERS Safety Report 14380742 (Version 1)
Quarter: 2018Q1

REPORT INFORMATION
  Report Type: Spontaneous
  Country: US (occurrence: US)
  Receive Date: 20180112
  Receipt Date: 20180112
  Transmission Date: 20180509
  Serious: No
  Sender: FDA-Public Use
  Company Number: US-ALKERMES INC.-ALK-2017-004590

PATIENT
  Age: 51 Year
  Sex: Male

DRUGS (1)
  1. ARISTADA [Suspect]
     Active Substance: ARIPIPRAZOLE LAUROXIL
     Indication: SCHIZOPHRENIA
     Dosage: 882 MG, QMO
     Route: 030
     Dates: start: 20160201

REACTIONS (4)
  - Fear [Recovered/Resolved]
  - Hallucinations, mixed [Recovered/Resolved]
  - Persecutory delusion [Recovered/Resolved]
  - Educational problem [Unknown]

NARRATIVE: CASE EVENT DATE: 201710
